FAERS Safety Report 6477965-X (Version None)
Quarter: 2009Q4

REPORT INFORMATION
  Report Type: 
  Country: None (occurrence: None)
  Receive Date: 20091207
  Receipt Date: 20091202
  Transmission Date: 20100525
  Serious: Yes (Life-Threatening)
  Sender: FDA-Public Use
  Company Number: B0541381C

PATIENT
  Sex: Female
  Weight: 54 kg

DRUGS (3)
  1. LAPATINIB [Suspect]
     Indication: BREAST CANCER
     Dosage: 1000MG PER DAY
     Route: 048
     Dates: start: 20080204
  2. TAXOL [Suspect]
     Indication: BREAST CANCER
     Dosage: 175MG CYCLIC
     Route: 042
     Dates: start: 20080204
  3. MYOCET [Suspect]
     Indication: BREAST CANCER
     Dosage: 60MG CYCLIC
     Route: 042
     Dates: start: 20080204

REACTIONS (1)
  - NEUTROPENIA [None]
